FAERS Safety Report 25735812 (Version 1)
Quarter: 2025Q3

REPORT INFORMATION
  Report Type: Spontaneous
  Country: US (occurrence: US)
  Receive Date: 20250828
  Receipt Date: 20250828
  Transmission Date: 20251020
  Serious: No
  Sender: PFIZER
  Company Number: US-PFIZER INC-202500170264

PATIENT
  Age: 62 Year
  Sex: Male
  Weight: 120.2 kg

DRUGS (1)
  1. MEDROL [Suspect]
     Active Substance: METHYLPREDNISOLONE
     Indication: Heart rate decreased

REACTIONS (3)
  - Condition aggravated [Unknown]
  - Overdose [Unknown]
  - Off label use [Unknown]
